FAERS Safety Report 5001460-8 (Version None)
Quarter: 2006Q2

REPORT INFORMATION
  Report Type: 
  Country: None (occurrence: None)
  Receive Date: 20060512
  Receipt Date: 20051004
  Transmission Date: 20061013
  Serious: Yes (Hospitalization)
  Sender: FDA-Public Use
  Company Number: US-MERCK-0510USA02671

PATIENT
  Age: 46 Year
  Sex: Male
  Weight: 89 kg

DRUGS (2)
  1. VIOXX [Suspect]
     Indication: ARTHRITIS
     Route: 048
     Dates: start: 20000901, end: 20020901
  2. ASPIRIN [Concomitant]
     Indication: ANALGESIC EFFECT
     Route: 065

REACTIONS (7)
  - ACUTE MYOCARDIAL INFARCTION [None]
  - CORONARY ARTERY DISEASE [None]
  - DISSEMINATED INTRAVASCULAR COAGULATION [None]
  - INTERVERTEBRAL DISC PROTRUSION [None]
  - RADICULOPATHY [None]
  - SPINAL DISORDER [None]
  - SPONDYLOLYSIS [None]
